FAERS Safety Report 13730607 (Version 2)
Quarter: 2017Q3

REPORT INFORMATION
  Report Type: Spontaneous
  Country: US (occurrence: US)
  Receive Date: 20170707
  Receipt Date: 20170922
  Transmission Date: 20171127
  Serious: Yes (Hospitalization)
  Sender: FDA-Public Use
  Company Number: US-JNJFOC-20170414398

PATIENT
  Age: 53 Year
  Sex: Female
  Weight: 93.44 kg

DRUGS (2)
  1. XARELTO [Suspect]
     Active Substance: RIVAROXABAN
     Indication: DEEP VEIN THROMBOSIS
     Route: 048
     Dates: start: 20150330, end: 20150416
  2. XARELTO [Suspect]
     Active Substance: RIVAROXABAN
     Indication: DEEP VEIN THROMBOSIS
     Dosage: 15MG/20 MG
     Route: 048
     Dates: start: 2015, end: 20150524

REACTIONS (2)
  - Gastric haemorrhage [Recovering/Resolving]
  - Anaemia postoperative [Unknown]

NARRATIVE: CASE EVENT DATE: 201504
